FAERS Safety Report 11390640 (Version 1)
Quarter: 2015Q3

REPORT INFORMATION
  Report Type: Spontaneous
  Country: US (occurrence: US)
  Receive Date: 20150818
  Receipt Date: 20150818
  Transmission Date: 20151125
  Serious: No
  Sender: FDA-Public Use
  Company Number: US-ROCHE-1382179

PATIENT
  Age: 61 Year
  Sex: Female

DRUGS (13)
  1. PEGASYS [Suspect]
     Active Substance: PEGINTERFERON ALFA-2A
     Route: 058
     Dates: start: 20140323, end: 20140410
  2. ESTRATEST [Concomitant]
     Active Substance: ESTROGENS, ESTERIFIED\METHYLTESTOSTERONE
  3. RIBASPHERE [Concomitant]
     Active Substance: RIBAVIRIN
     Dosage: DIVIDED DOSE 600/400 MG
     Route: 048
     Dates: start: 20140323, end: 20140410
  4. SOVALDI [Concomitant]
     Active Substance: SOFOSBUVIR
     Route: 048
     Dates: start: 20140212
  5. NORCO [Concomitant]
     Active Substance: ACETAMINOPHEN\HYDROCODONE BITARTRATE
  6. ACYCLOVIR. [Concomitant]
     Active Substance: ACYCLOVIR
  7. TRIAMCINOLONE [Concomitant]
     Active Substance: TRIAMCINOLONE
  8. PEGASYS [Suspect]
     Active Substance: PEGINTERFERON ALFA-2A
     Indication: HEPATITIS C
     Route: 058
     Dates: start: 20140212
  9. VALIUM [Concomitant]
     Active Substance: DIAZEPAM
  10. RIBASPHERE [Concomitant]
     Active Substance: RIBAVIRIN
     Dosage: DIVIDED DOSE: 600/400 MG
     Route: 048
     Dates: start: 20140212
  11. SOVALDI [Concomitant]
     Active Substance: SOFOSBUVIR
     Indication: HEPATITIS C
     Route: 048
     Dates: start: 20140323, end: 20140410
  12. SOMA [Concomitant]
     Active Substance: CARISOPRODOL
  13. ADDERALL [Concomitant]
     Active Substance: AMPHETAMINE ASPARTATE\AMPHETAMINE SULFATE\DEXTROAMPHETAMINE SACCHARATE\DEXTROAMPHETAMINE SULFATE

REACTIONS (3)
  - Fatigue [Unknown]
  - Rash [Not Recovered/Not Resolved]
  - Erythema multiforme [Recovering/Resolving]

NARRATIVE: CASE EVENT DATE: 20140406
